FAERS Safety Report 4443522-X (Version None)
Quarter: 2004Q3

REPORT INFORMATION
  Report Type: 
  Country: None (occurrence: None)
  Receive Date: 20040901
  Receipt Date: 20040825
  Transmission Date: 20050211
  Serious: Yes (Hospitalization)
  Sender: FDA-Public Use
  Company Number: HQWYE610626AUG04

PATIENT
  Age: 35 Year
  Sex: Female

DRUGS (1)
  1. TACROLIMUS, CONTROL FOR SIROLIMUS (TACROLIMUS, [Suspect]
     Indication: PROPHYLAXIS AGAINST TRANSPLANT REJECTION
     Dosage: 3 MG 2X PER 1 DAY, ORAL
     Route: 048
     Dates: start: 20040808

REACTIONS (1)
  - IMPAIRED GASTRIC EMPTYING [None]
